FAERS Safety Report 5011876-1 (Version None)
Quarter: 2006Q2

REPORT INFORMATION
  Report Type: 
  Country: None (occurrence: None)
  Receive Date: 20060526
  Receipt Date: 20060411
  Transmission Date: 20061013
  Serious: Yes (Hospitalization)
  Sender: FDA-Public Use
  Company Number: IT-SANOFI-SYNTHELABO-A06200600115

PATIENT
  Sex: Male

DRUGS (3)
  1. FLUOROURACILE TEVA [Suspect]
     Indication: COLON CANCER STAGE II
     Route: 041
     Dates: start: 20060309, end: 20060309
  2. ACIDO FOLINICO [Suspect]
     Indication: COLON CANCER STAGE II
     Route: 065
     Dates: start: 20060309, end: 20060309
  3. ELOXATIN [Suspect]
     Indication: COLON CANCER STAGE II
     Route: 042
     Dates: start: 20060309, end: 20060309

REACTIONS (1)
  - ATRIAL FLUTTER [None]
